FAERS Safety Report 6703112-2 (Version None)
Quarter: 2010Q2

REPORT INFORMATION
  Report Type: 
  Country: None (occurrence: None)
  Receive Date: 20100430
  Receipt Date: 20100428
  Transmission Date: 20101027
  Serious: Yes (Other)
  Sender: FDA-Public Use
  Company Number: US-BIOGENIDEC-2010BI011305

PATIENT
  Age: 40 Year
  Sex: Female
  Weight: 65 kg

DRUGS (14)
  1. TYSABRI [Suspect]
     Indication: MULTIPLE SCLEROSIS
     Route: 042
     Dates: start: 20090727, end: 20100112
  2. TYSABRI [Suspect]
     Route: 042
     Dates: start: 20100326
  3. OXYCONTIN [Concomitant]
  4. BACLOFEN [Concomitant]
  5. PEXEVA [Concomitant]
  6. XANAX [Concomitant]
  7. LOESTRIN 1.5/30 [Concomitant]
  8. AXERT [Concomitant]
     Indication: MIGRAINE
  9. REGLAN [Concomitant]
     Indication: MIGRAINE
  10. IBUPROFEN [Concomitant]
     Indication: MIGRAINE
  11. SOMA [Concomitant]
     Indication: MUSCLE SPASMS
  12. MARINOL [Concomitant]
  13. PAMELOR [Concomitant]
     Indication: MIGRAINE PROPHYLAXIS
  14. VICODIN [Concomitant]
     Indication: PAIN

REACTIONS (1)
  - ABORTION SPONTANEOUS [None]
